FAERS Safety Report 4739224-2 (Version None)
Quarter: 2005Q3

REPORT INFORMATION
  Report Type: 
  Country: None (occurrence: None)
  Receive Date: 20050810
  Receipt Date: 20050526
  Transmission Date: 20060218
  Serious: No
  Sender: FDA-Public Use
  Company Number: US-GLAXOSMITHKLINE-A0560321A

PATIENT
  Age: 30 Year
  Sex: Male

DRUGS (4)
  1. PAXIL CR [Suspect]
     Dosage: 12.5MG PER DAY
     Route: 048
  2. PAXIL [Suspect]
     Dosage: .5TAB PER DAY
     Route: 048
  3. LEXAPRO [Concomitant]
  4. ENALAPRIL [Concomitant]

REACTIONS (2)
  - ANXIETY [None]
  - WEIGHT INCREASED [None]
